FAERS Safety Report 22012612 (Version 1)
Quarter: 2023Q1

REPORT INFORMATION
  Report Type: Spontaneous
  Country: FR (occurrence: FR)
  Receive Date: 20230220
  Receipt Date: 20230220
  Transmission Date: 20230418
  Serious: Yes (Other)
  Sender: FDA-Public Use
  Company Number: FR-TAKEDA-2023TUS016476

PATIENT
  Sex: Male

DRUGS (1)
  1. ENTYVIO [Suspect]
     Active Substance: VEDOLIZUMAB
     Indication: Enterocolitis haemorrhagic
     Dosage: UNK
     Route: 042
     Dates: start: 20230127

REACTIONS (2)
  - Pericarditis [Unknown]
  - Off label use [Unknown]

NARRATIVE: CASE EVENT DATE: 20230127
